FAERS Safety Report 6316868-8 (Version None)
Quarter: 2009Q3

REPORT INFORMATION
  Report Type: 
  Country: None (occurrence: None)
  Receive Date: 20090820
  Receipt Date: 20090810
  Transmission Date: 20100115
  Serious: Yes (Hospitalization)
  Sender: FDA-Public Use
  Company Number: FR-ELI_LILLY_AND_COMPANY-FR200908001755

PATIENT
  Sex: Male

DRUGS (5)
  1. ZYPREXA [Suspect]
     Route: 048
     Dates: start: 20090721, end: 20090721
  2. DEROXAT [Concomitant]
     Dosage: 20 MG, DAILY (1/D)
     Route: 048
     Dates: start: 20090701
  3. HYPERIUM [Concomitant]
     Dosage: 1 MG, DAILY (1/D)
     Route: 048
  4. ZESTORETIC [Concomitant]
     Dosage: 1 D/F, DAILY (1/D)
  5. SERESTA [Concomitant]
     Dosage: 50 MG, DAILY (1/D)
     Route: 048
     Dates: start: 20090701

REACTIONS (6)
  - DERMATITIS [None]
  - INFLAMMATION [None]
  - LOSS OF CONSCIOUSNESS [None]
  - MULTIPLE DRUG OVERDOSE INTENTIONAL [None]
  - THROMBOPHLEBITIS SUPERFICIAL [None]
  - VARICOPHLEBITIS [None]
